FAERS Safety Report 8586598-0 (Version None)
Quarter: 2012Q3

REPORT INFORMATION
  Report Type: 
  Country: None (occurrence: None)
  Receive Date: 20120810
  Receipt Date: 20120807
  Transmission Date: 20120928
  Serious: No
  Sender: FDA-Public Use
  Company Number: US-PFIZER INC-2012193748

PATIENT
  Age: 36 Year
  Sex: Female
  Weight: 58.957 kg

DRUGS (2)
  1. XANAX [Concomitant]
     Indication: ANXIETY
     Dosage: 0.5 MG, DAILY
  2. CHANTIX [Suspect]
     Indication: SMOKING CESSATION THERAPY
     Dosage: 0.5 MG, DAILY
     Dates: start: 20120723

REACTIONS (2)
  - INSOMNIA [None]
  - NIGHTMARE [None]
